FAERS Safety Report 7973774-0 (Version None)
Quarter: 2011Q4

REPORT INFORMATION
  Report Type: 
  Country: None (occurrence: None)
  Receive Date: 20111129
  Receipt Date: 20110909
  Transmission Date: 20120403
  Serious: No
  Sender: FDA-Public Use
  Company Number: PHHY2011US06790

PATIENT
  Age: 22 Year
  Sex: Male
  Weight: 65.8 kg

DRUGS (3)
  1. LAMICTAL [Concomitant]
  2. AFINITOR [Suspect]
     Indication: TUBEROUS SCLEROSIS
     Dosage: 5 MG DAILY, ORAL ; 2.5 MG
     Route: 048
     Dates: start: 20110827
  3. AFINITOR [Suspect]
     Indication: TUBEROUS SCLEROSIS
     Dosage: 5 MG DAILY, ORAL ; 2.5 MG
     Route: 048
     Dates: start: 20110101

REACTIONS (8)
  - CONCOMITANT DISEASE PROGRESSION [None]
  - RHINORRHOEA [None]
  - FEELING HOT [None]
  - DIARRHOEA [None]
  - ANGIOMYOLIPOMA [None]
  - PYREXIA [None]
  - PLATELET COUNT DECREASED [None]
  - NASAL CONGESTION [None]
